FAERS Safety Report 9841028 (Version 2)
Quarter: 2014Q1

REPORT INFORMATION
  Report Type: Report from Study
  Country: IT (occurrence: IT)
  Receive Date: 20140124
  Receipt Date: 20140217
  Transmission Date: 20141002
  Serious: Yes (Death)
  Sender: FDA-Public Use
  Company Number: IT-CELGENEUS-083-50794-14012479

PATIENT
  Age: 69 Year
  Sex: Male

DRUGS (12)
  1. VIDAZA [Suspect]
     Indication: MYELODYSPLASTIC SYNDROME
     Dosage: 142.5 MILLIGRAM
     Route: 058
     Dates: start: 20131202, end: 20131206
  2. REVLIMID [Suspect]
     Indication: MYELODYSPLASTIC SYNDROME
     Dosage: 5 MILLIGRAM
     Route: 048
     Dates: start: 20131202, end: 20131218
  3. REVLIMID [Suspect]
     Route: 048
     Dates: start: 20131206, end: 20131218
  4. RED BLOOD CELLS [Concomitant]
     Indication: ANAEMIA
     Route: 041
     Dates: start: 20131217, end: 20131217
  5. BETAMETHASONE [Concomitant]
     Indication: ERYTHEMA
     Route: 065
     Dates: start: 20131217
  6. CETIRIZINA DICLORIDRATO [Concomitant]
     Indication: ERYTHEMA
     Route: 048
     Dates: start: 20131217
  7. FORMUDAL [Concomitant]
     Indication: PRODUCT USED FOR UNKNOWN INDICATION
     Route: 055
  8. SPIRIVA [Concomitant]
     Indication: PRODUCT USED FOR UNKNOWN INDICATION
     Route: 055
  9. LANSOPRAZOLE [Concomitant]
     Indication: PRODUCT USED FOR UNKNOWN INDICATION
     Route: 065
  10. ALLOPURINOL [Concomitant]
     Indication: PRODUCT USED FOR UNKNOWN INDICATION
     Route: 065
  11. LASIX [Concomitant]
     Indication: PRODUCT USED FOR UNKNOWN INDICATION
     Route: 065
  12. CARDIOASPIRIN [Concomitant]
     Indication: PRODUCT USED FOR UNKNOWN INDICATION
     Route: 065

REACTIONS (1)
  - Sudden death [Fatal]
